FAERS Safety Report 7389222-8 (Version None)
Quarter: 2011Q2

REPORT INFORMATION
  Report Type: 
  Country: None (occurrence: None)
  Receive Date: 20110401
  Receipt Date: 20110323
  Transmission Date: 20111010
  Serious: Yes (Hospitalization, Other)
  Sender: FDA-Public Use
  Company Number: US-SANOFI-AVENTIS-A03200606642

PATIENT
  Age: 74 Year
  Sex: Female
  Weight: 55 kg

DRUGS (25)
  1. IMODIUM [Concomitant]
  2. ESTROGENS CONJUGATED [Concomitant]
  3. PROCARDIA [Concomitant]
  4. VICODIN [Concomitant]
  5. ENABLEX [Concomitant]
  6. ADVAIR DISKUS 100/50 [Concomitant]
     Dosage: 1 PUFF QID 250/50
  7. THIAMINE [Concomitant]
  8. ATIVAN [Concomitant]
  9. TOPROL-XL [Concomitant]
     Indication: HYPERTENSION
  10. CARDIZEM [Concomitant]
  11. CENTRUM SILVER [Concomitant]
  12. SIMVASTATIN [Concomitant]
  13. ZANAFLEX [Concomitant]
  14. PLAVIX [Suspect]
     Dosage: UNIT DOSE: 75 MG
     Route: 048
     Dates: start: 20030701, end: 20051001
  15. PLAVIX [Suspect]
     Indication: ATRIAL FIBRILLATION
     Dosage: UNIT DOSE: 75 MG
     Route: 048
     Dates: start: 20030701, end: 20051001
  16. COUMADIN [Concomitant]
     Dates: start: 20091201
  17. PLAVIX [Suspect]
     Dosage: UNIT DOSE: 75 MG
     Route: 048
     Dates: start: 20030701, end: 20051001
  18. ARICEPT [Concomitant]
  19. MEDROL [Concomitant]
  20. ASPIRIN [Concomitant]
  21. LODINE [Concomitant]
  22. LANOXIN [Concomitant]
     Route: 048
  23. DIOVAN [Concomitant]
     Route: 048
  24. LORTAB [Concomitant]
     Indication: PAIN
  25. FOLIC ACID [Concomitant]

REACTIONS (18)
  - ATRIAL FIBRILLATION [None]
  - ELECTROCARDIOGRAM QT PROLONGED [None]
  - AMNESIA [None]
  - OFF LABEL USE [None]
  - PARAESTHESIA [None]
  - TRANSIENT ISCHAEMIC ATTACK [None]
  - APHASIA [None]
  - CHEST PAIN [None]
  - HYPOAESTHESIA [None]
  - SENSORY LOSS [None]
  - HEADACHE [None]
  - CEREBRAL INFARCTION [None]
  - ELECTROCARDIOGRAM Q WAVE ABNORMAL [None]
  - ASTHENIA [None]
  - DIZZINESS [None]
  - ABASIA [None]
  - DYSPNOEA [None]
  - HYPOTENSION [None]
